FAERS Safety Report 11735484 (Version 4)
Quarter: 2016Q4

REPORT INFORMATION
  Report Type: Spontaneous
  Country: US (occurrence: US)
  Receive Date: 20151113
  Receipt Date: 20161206
  Transmission Date: 20170206
  Serious: Yes (Other)
  Sender: FDA-Public Use
  Company Number: US-JNJFOC-20151008369

PATIENT
  Sex: Male

DRUGS (16)
  1. RISPERDAL [Suspect]
     Active Substance: RISPERIDONE
     Indication: BIPOLAR DISORDER
     Route: 048
     Dates: start: 20090622, end: 20090708
  2. RISPERDAL [Suspect]
     Active Substance: RISPERIDONE
     Indication: HALLUCINATION, AUDITORY
     Dosage: VARYING DOSE 1MG AND 2MG
     Route: 048
     Dates: start: 20110303, end: 20110321
  3. RISPERDAL [Suspect]
     Active Substance: RISPERIDONE
     Indication: HALLUCINATION, AUDITORY
     Route: 048
     Dates: start: 20090622, end: 20090708
  4. INVEGA [Suspect]
     Active Substance: PALIPERIDONE
     Indication: ATTENTION DEFICIT/HYPERACTIVITY DISORDER
     Route: 048
     Dates: start: 20090115, end: 20090316
  5. RISPERDAL [Suspect]
     Active Substance: RISPERIDONE
     Indication: IRRITABILITY
     Dosage: VARYING DOSE 1MG AND 2MG
     Route: 048
     Dates: start: 20110303, end: 20110321
  6. RISPERDAL [Suspect]
     Active Substance: RISPERIDONE
     Indication: EMOTIONAL DISORDER
     Dosage: VARYING DOSE 1MG AND 2MG
     Route: 048
     Dates: start: 20110303, end: 20110321
  7. RISPERDAL [Suspect]
     Active Substance: RISPERIDONE
     Indication: MOOD SWINGS
     Route: 048
     Dates: start: 20090622, end: 20090708
  8. RISPERDAL [Suspect]
     Active Substance: RISPERIDONE
     Indication: MOOD SWINGS
     Dosage: VARYING DOSE 1MG AND 2MG
     Route: 048
     Dates: start: 20110303, end: 20110321
  9. RISPERDAL [Suspect]
     Active Substance: RISPERIDONE
     Indication: ATTENTION DEFICIT/HYPERACTIVITY DISORDER
     Route: 048
     Dates: start: 20090622, end: 20090708
  10. RISPERIDONE. [Suspect]
     Active Substance: RISPERIDONE
     Indication: ATTENTION DEFICIT/HYPERACTIVITY DISORDER
     Dosage: VARYING DOSE 1MG AND 2MG
     Route: 048
     Dates: start: 20090730, end: 20110618
  11. RISPERIDONE. [Suspect]
     Active Substance: RISPERIDONE
     Indication: BIPOLAR DISORDER
     Dosage: VARYING DOSE 1MG AND 2MG
     Route: 048
     Dates: start: 20090730, end: 20110618
  12. RISPERDAL [Suspect]
     Active Substance: RISPERIDONE
     Indication: IRRITABILITY
     Route: 048
     Dates: start: 20090622, end: 20090708
  13. RISPERDAL [Suspect]
     Active Substance: RISPERIDONE
     Indication: EMOTIONAL DISORDER
     Route: 048
     Dates: start: 20090622, end: 20090708
  14. RISPERDAL [Suspect]
     Active Substance: RISPERIDONE
     Indication: ATTENTION DEFICIT/HYPERACTIVITY DISORDER
     Dosage: VARYING DOSE 1MG AND 2MG
     Route: 048
     Dates: start: 20110303, end: 20110321
  15. RISPERDAL [Suspect]
     Active Substance: RISPERIDONE
     Indication: BIPOLAR DISORDER
     Dosage: VARYING DOSE 1MG AND 2MG
     Route: 048
     Dates: start: 20110303, end: 20110321
  16. INVEGA [Suspect]
     Active Substance: PALIPERIDONE
     Indication: BIPOLAR DISORDER
     Route: 048
     Dates: start: 20090115, end: 20090316

REACTIONS (3)
  - Hyperprolactinaemia [Unknown]
  - Gynaecomastia [Unknown]
  - Obesity [Unknown]

NARRATIVE: CASE EVENT DATE: 2009
